FAERS Safety Report 14880073 (Version 4)
Quarter: 2019Q1

REPORT INFORMATION
  Report Type: Spontaneous
  Country: CA (occurrence: CA)
  Receive Date: 20180511
  Receipt Date: 20190117
  Transmission Date: 20190417
  Serious: Yes (Hospitalization, Other)
  Sender: FDA-Public Use
  Company Number: CA-JNJFOC-20161101873

PATIENT

DRUGS (1)
  1. INFLIXIMAB, RECOMBINANT [Suspect]
     Active Substance: INFLIXIMAB
     Indication: CROHN^S DISEASE
     Route: 042

REACTIONS (7)
  - Pharyngitis [Unknown]
  - Type IV hypersensitivity reaction [Unknown]
  - Malignant melanoma [Unknown]
  - Infection [Unknown]
  - Arthralgia [Unknown]
  - Treatment failure [Unknown]
  - Infusion related reaction [Unknown]
